FAERS Safety Report 5362792-7 (Version None)
Quarter: 2007Q2

REPORT INFORMATION
  Report Type: 
  Country: None (occurrence: None)
  Receive Date: 20070619
  Receipt Date: 20070607
  Transmission Date: 20071010
  Serious: Yes (Other)
  Sender: FDA-Public Use
  Company Number: US-PFIZER INC-2007047955

PATIENT
  Age: 51 Year
  Sex: Male
  Weight: 90.7 kg

DRUGS (6)
  1. CHANTIX [Suspect]
     Indication: SMOKING CESSATION THERAPY
     Dates: start: 20070101, end: 20070606
  2. LEXAPRO [Interacting]
     Indication: DEPRESSION
  3. VYTORIN [Concomitant]
  4. METFORMIN HCL [Concomitant]
  5. NIACIN [Concomitant]
  6. LISINOPRIL [Concomitant]

REACTIONS (5)
  - DEPRESSION [None]
  - DRUG INTERACTION [None]
  - FATIGUE [None]
  - NAUSEA [None]
  - SOMNOLENCE [None]
